FAERS Safety Report 9746141 (Version 1)
Quarter: 2013Q4

REPORT INFORMATION
  Report Type: Spontaneous
  Country: US (occurrence: None)
  Receive Date: 20131209
  Receipt Date: 20131209
  Transmission Date: 20140711
  Serious: Yes (Disabling)
  Sender: FDA-Public Use
  Company Number: None

PATIENT
  Age: 59 Year
  Sex: Female
  Weight: 68.04 kg

DRUGS (1)
  1. CONCERTA (GENERIC) [Suspect]
     Indication: ATTENTION DEFICIT/HYPERACTIVITY DISORDER
     Dosage: 2 PILLS IN THE MORNING, ONCE DAILY, TAKEN BY MOUTH
     Route: 048
     Dates: start: 20131123, end: 20131208

REACTIONS (4)
  - Headache [None]
  - Attention deficit/hyperactivity disorder [None]
  - Job dissatisfaction [None]
  - Product substitution issue [None]
